FAERS Safety Report 22400100 (Version 7)
Quarter: 2024Q1

REPORT INFORMATION
  Report Type: Spontaneous
  Country: US (occurrence: US)
  Receive Date: 20230602
  Receipt Date: 20240215
  Transmission Date: 20240409
  Serious: Yes (Other)
  Sender: FDA-Public Use
  Company Number: US-BRISTOL-MYERS SQUIBB COMPANY-2023-078014

PATIENT
  Age: 79 Year
  Sex: Female

DRUGS (2)
  1. REVLIMID [Suspect]
     Active Substance: LENALIDOMIDE
     Indication: Plasma cell myeloma
     Dosage: QD (EVERYDAY) FOR 21D ON 7D OFF
     Route: 048
  2. REVLIMID [Suspect]
     Active Substance: LENALIDOMIDE
     Route: 048

REACTIONS (12)
  - Crying [Unknown]
  - Anxiety [Unknown]
  - Nausea [Unknown]
  - Constipation [Unknown]
  - Vomiting [Unknown]
  - Rib fracture [Unknown]
  - Abdominal discomfort [Unknown]
  - Arthralgia [Unknown]
  - Hot flush [Unknown]
  - Muscle spasms [Unknown]
  - Sensory disturbance [Unknown]
  - Product dose omission issue [Unknown]

NARRATIVE: CASE EVENT DATE: 20230101
